FAERS Safety Report 4946415-4 (Version None)
Quarter: 2006Q1

REPORT INFORMATION
  Report Type: 
  Country: None (occurrence: None)
  Receive Date: 20060313
  Receipt Date: 20060228
  Transmission Date: 20060701
  Serious: Yes (Hospitalization, Other)
  Sender: FDA-Public Use
  Company Number: 2006031834

PATIENT
  Age: 78 Year
  Sex: Male

DRUGS (6)
  1. DETROL LA [Suspect]
     Indication: HYPERTONIC BLADDER
     Dosage: 4 MG (4 MG, 1 IN 1 D); ORAL
     Route: 048
  2. CADUET [Concomitant]
  3. VALSARTAN [Concomitant]
  4. INSULIN [Concomitant]
  5. ALL OTHER THERAPEUTIC PRODUCTS [Concomitant]
  6. POTASSIUM [Concomitant]

REACTIONS (1)
  - HEART VALVE OPERATION [None]
